FAERS Safety Report 10163886 (Version 2)
Quarter: 2014Q2

REPORT INFORMATION
  Report Type: Report from Study
  Country: BR (occurrence: BR)
  Receive Date: 20140510
  Receipt Date: 20140609
  Transmission Date: 20141212
  Serious: Yes (Hospitalization, Other)
  Sender: FDA-Public Use
  Company Number: PHHY2014BR056700

PATIENT
  Sex: Male
  Weight: 68 kg

DRUGS (3)
  1. FORASEQ [Suspect]
     Indication: BRONCHITIS
     Dosage: 1 DF, QD (AT NIGHT)
     Route: 055
  2. AZUKON [Concomitant]
     Indication: DIABETES MELLITUS
     Dosage: UNK UKN, UNK
  3. DORFLEX [Concomitant]
     Indication: PAIN
     Dosage: UNK UKN, UNK

REACTIONS (1)
  - Asthma [Recovered/Resolved]
